FAERS Safety Report 13039735 (Version 2)
Quarter: 2016Q4

REPORT INFORMATION
  Report Type: Spontaneous
  Country: US (occurrence: US)
  Receive Date: 20161219
  Receipt Date: 20161229
  Transmission Date: 20170207
  Serious: Yes (Other)
  Sender: FDA-Public Use
  Company Number: US-DRREDDYS-USA/USA/16/0085607

PATIENT
  Age: 23 Year
  Sex: Female

DRUGS (1)
  1. TACROLIMUS. [Suspect]
     Active Substance: TACROLIMUS
     Indication: IMMUNOSUPPRESSION
     Route: 065

REACTIONS (4)
  - Respiratory failure [Unknown]
  - Pulmonary alveolar haemorrhage [Recovering/Resolving]
  - Histoplasmosis disseminated [Unknown]
  - Transplant failure [Unknown]
